FAERS Safety Report 11721018 (Version 1)
Quarter: 2015Q4

REPORT INFORMATION
  Report Type: Spontaneous
  Country: US (occurrence: US)
  Receive Date: 20151110
  Receipt Date: 20151110
  Transmission Date: 20160304
  Serious: No
  Sender: FDA-Public Use
  Company Number: US-SA-2015SA164599

PATIENT
  Age: 53 Year
  Sex: Female

DRUGS (3)
  1. CRESTOR [Concomitant]
     Active Substance: ROSUVASTATIN CALCIUM
     Indication: BLOOD CHOLESTEROL
  2. PRALUENT [Suspect]
     Active Substance: ALIROCUMAB
     Indication: BLOOD CHOLESTEROL
     Route: 058
     Dates: start: 20150914
  3. ALIROCUMAB PREFILLED PEN [Concomitant]
     Indication: BLOOD CHOLESTEROL
     Dates: start: 20150914

REACTIONS (10)
  - Rhinorrhoea [Not Recovered/Not Resolved]
  - Diarrhoea [Not Recovered/Not Resolved]
  - Injection site pain [Recovered/Resolved]
  - Oropharyngeal pain [Unknown]
  - Injection site haemorrhage [Recovered/Resolved]
  - Gait disturbance [Not Recovered/Not Resolved]
  - Weight increased [Unknown]
  - Pruritus [Unknown]
  - Pain in extremity [Not Recovered/Not Resolved]
  - Influenza like illness [Not Recovered/Not Resolved]

NARRATIVE: CASE EVENT DATE: 2015
